FAERS Safety Report 8014550-2 (Version None)
Quarter: 2011Q4

REPORT INFORMATION
  Report Type: 
  Country: None (occurrence: None)
  Receive Date: 20111229
  Receipt Date: 20111222
  Transmission Date: 20120403
  Serious: Yes (Hospitalization)
  Sender: FDA-Public Use
  Company Number: PR-ABBOTT-11P-131-0886506-00

PATIENT
  Sex: Female
  Weight: 105.33 kg

DRUGS (5)
  1. FOLIC ACID [Concomitant]
     Indication: PRODUCT USED FOR UNKNOWN INDICATION
     Route: 048
  2. HUMIRA [Suspect]
     Dosage: SECOND DOSE
     Route: 058
     Dates: start: 20111212
  3. HUMIRA [Suspect]
     Dosage: INITIAL DOSE
     Route: 058
     Dates: start: 20111202, end: 20111202
  4. ASACOL [Concomitant]
     Indication: PRODUCT USED FOR UNKNOWN INDICATION
     Route: 048
  5. HUMIRA [Suspect]
     Indication: CROHN'S DISEASE
     Route: 058
     Dates: start: 20110801, end: 20111001

REACTIONS (1)
  - VAGINAL HAEMORRHAGE [None]
